FAERS Safety Report 5860394-7 (Version None)
Quarter: 2008Q3

REPORT INFORMATION
  Report Type: 
  Country: None (occurrence: None)
  Receive Date: 20080827
  Receipt Date: 20080820
  Transmission Date: 20090109
  Serious: Yes (Other)
  Sender: FDA-Public Use
  Company Number: US-JNJCH-2008021639

PATIENT
  Sex: Female

DRUGS (1)
  1. LISTERINE WHITENING QUICK DISSOLVING STRIPS [Suspect]
     Indication: DENTAL CARE
     Dosage: TEXT:AS INSTRUCTED
     Route: 048

REACTIONS (4)
  - BURNING SENSATION [None]
  - CHEILITIS [None]
  - DRUG INEFFECTIVE [None]
  - PAIN [None]
